FAERS Safety Report 7595968-9 (Version None)
Quarter: 2011Q3

REPORT INFORMATION
  Report Type: 
  Country: None (occurrence: None)
  Receive Date: 20110707
  Receipt Date: 20110624
  Transmission Date: 20111222
  Serious: Yes (Other)
  Sender: FDA-Public Use
  Company Number: PHHY2011VE56151

PATIENT
  Sex: Female

DRUGS (10)
  1. OXYBUTYNIN [Concomitant]
     Dosage: UNK
     Route: 048
     Dates: start: 20110615
  2. TAMSULOSIN HYDROCHLORIDE [Concomitant]
     Indication: URETHRAL OPERATION
     Dosage: UNK UKN, UNK
     Route: 048
     Dates: start: 20100901, end: 20110201
  3. LYRICA [Concomitant]
     Indication: PAIN
     Dosage: 1 DF,
     Route: 048
  4. LYRICA [Concomitant]
     Dosage: 75 MG TWICE A DAY
     Dates: start: 20110614
  5. ARTRODAR [Concomitant]
     Indication: BLADDER DISORDER
     Dosage: 50 MG, QD
     Route: 048
     Dates: start: 20110614
  6. OXYBUTYNIN [Concomitant]
     Indication: URETHRAL OPERATION
     Dosage: 1 DF,
     Dates: start: 20100901, end: 20110201
  7. ACLASTA [Suspect]
     Indication: OSTEOPOROSIS
     Dosage: 5 MG,
     Route: 042
     Dates: start: 20090101
  8. CELEBREX [Concomitant]
     Indication: PAIN
     Dosage: TWICE A DAY
     Dates: start: 20110614
  9. TAMSULOSIN HYDROCHLORIDE [Concomitant]
     Dosage: UNK
     Dates: start: 20110615
  10. GLUCOSAMINE SULFATE [Concomitant]
     Dosage: 1 DF, UNK
     Route: 048
     Dates: start: 20070101

REACTIONS (10)
  - ARTHRALGIA [None]
  - BLADDER DILATATION [None]
  - DYSPHONIA [None]
  - FLUID RETENTION [None]
  - OROPHARYNGEAL PAIN [None]
  - PAIN [None]
  - HEADACHE [None]
  - FIBROSIS [None]
  - INFLUENZA [None]
  - COUGH [None]
